FAERS Safety Report 25130061 (Version 4)
Quarter: 2025Q3

REPORT INFORMATION
  Report Type: Spontaneous
  Country: US (occurrence: US)
  Receive Date: 20250327
  Receipt Date: 20250827
  Transmission Date: 20251020
  Serious: Yes (Hospitalization, Other)
  Sender: SANOFI AVENTIS
  Company Number: US-SA-2025SA084653

PATIENT
  Age: 80 Year
  Sex: Female

DRUGS (1)
  1. DUPIXENT [Suspect]
     Active Substance: DUPILUMAB
     Indication: Dermatitis atopic
     Dosage: 300MG, QOW
     Route: 058

REACTIONS (7)
  - Colon cancer [Unknown]
  - Cardiac pacemaker insertion [Unknown]
  - Infection [Unknown]
  - Dyspnoea [Unknown]
  - Lung disorder [Unknown]
  - Dry mouth [Unknown]
  - Skin exfoliation [Unknown]
